FAERS Safety Report 21516085 (Version 1)
Quarter: 2022Q4

REPORT INFORMATION
  Report Type: Spontaneous
  Country: US (occurrence: US)
  Receive Date: 20221027
  Receipt Date: 20221027
  Transmission Date: 20230113
  Serious: No
  Sender: FDA-Public Use
  Company Number: US-FOUNDATIONCONSUMERHC-2022-US-016409

PATIENT
  Age: 16 Year
  Sex: Female

DRUGS (1)
  1. PLAN B ONE-STEP [Suspect]
     Active Substance: LEVONORGESTREL
     Indication: Product use in unapproved indication
     Dosage: 1.5 MG X 2 DOSES
     Route: 048
     Dates: start: 202110, end: 20220630

REACTIONS (7)
  - Breast pain [Not Recovered/Not Resolved]
  - Fatigue [Unknown]
  - Vaginal haemorrhage [Not Recovered/Not Resolved]
  - Mood swings [Not Recovered/Not Resolved]
  - Vaginal haemorrhage [Recovered/Resolved]
  - Intentional product misuse [Recovered/Resolved]
  - Product use in unapproved indication [Recovered/Resolved]

NARRATIVE: CASE EVENT DATE: 20211001
